FAERS Safety Report 8817952 (Version 3)
Quarter: 2012Q4

REPORT INFORMATION
  Report Type: 
  Country: MX (occurrence: MX)
  Receive Date: 20121001
  Receipt Date: 20121022
  Transmission Date: 20130627
  Serious: Yes (Other)
  Sender: FDA-Public Use
  Company Number: MX-ELI_LILLY_AND_COMPANY-MX201209008303

PATIENT
  Age: 54 Year
  Sex: Female

DRUGS (1)
  1. COMPETACT [Suspect]
     Dosage: UNK, unknown
     Dates: start: 2009, end: 201207

REACTIONS (3)
  - Colon cancer [Unknown]
  - Cervix carcinoma stage IV [Unknown]
  - Anaemia [Unknown]
